FAERS Safety Report 10867205 (Version 1)
Quarter: 2015Q1

REPORT INFORMATION
  Report Type: Spontaneous
  Country: US (occurrence: US)
  Receive Date: 20150225
  Receipt Date: 20150225
  Transmission Date: 20150721
  Serious: No
  Sender: FDA-Public Use
  Company Number: US-PFIZER INC-2015068550

PATIENT
  Age: 82 Year
  Sex: Female

DRUGS (5)
  1. DEXTROMYCIN [Suspect]
     Active Substance: NEOMYCIN SULFATE
     Dosage: UNK
  2. MARCAINE [Suspect]
     Active Substance: BUPIVACAINE HYDROCHLORIDE
     Indication: ARTHROPATHY
     Dosage: UNK
  3. TOPROL XL [Suspect]
     Active Substance: METOPROLOL SUCCINATE
     Dosage: UNK
  4. DEPO-MEDROL [Suspect]
     Active Substance: METHYLPREDNISOLONE ACETATE
     Dosage: UNK
  5. DANAZOL. [Suspect]
     Active Substance: DANAZOL

REACTIONS (1)
  - Drug hypersensitivity [Unknown]
